FAERS Safety Report 15436124 (Version 3)
Quarter: 2019Q3

REPORT INFORMATION
  Report Type: Spontaneous
  Country: US (occurrence: US)
  Receive Date: 20180927
  Receipt Date: 20190716
  Transmission Date: 20191004
  Serious: Yes (Hospitalization, Other)
  Sender: FDA-Public Use
  Company Number: US-ASTRAZENECA-2018SF20114

PATIENT
  Age: 19685 Day
  Sex: Male
  Weight: 97.5 kg

DRUGS (28)
  1. FENOFIBRATE. [Concomitant]
     Active Substance: FENOFIBRATE
  2. HYDROCHLOROTHIAZIDE. [Concomitant]
     Active Substance: HYDROCHLOROTHIAZIDE
  3. AMLODIPINE BESYLATE. [Concomitant]
     Active Substance: AMLODIPINE BESYLATE
  4. LISINOPRIL. [Concomitant]
     Active Substance: LISINOPRIL
  5. FENOFIBRATE. [Concomitant]
     Active Substance: FENOFIBRATE
  6. ATORVASTATIN CALCIUM. [Concomitant]
     Active Substance: ATORVASTATIN CALCIUM
  7. CLONIDINE. [Concomitant]
     Active Substance: CLONIDINE
  8. CILOSTAZOL. [Concomitant]
     Active Substance: CILOSTAZOL
  9. RAMIPRIL. [Concomitant]
     Active Substance: RAMIPRIL
  10. ZOCOR [Concomitant]
     Active Substance: SIMVASTATIN
  11. NEXIUM [Suspect]
     Active Substance: ESOMEPRAZOLE MAGNESIUM
     Indication: GASTROOESOPHAGEAL REFLUX DISEASE
     Dosage: 40.0MG UNKNOWN
     Route: 048
     Dates: start: 2009, end: 2016
  12. SIMVASTATIN. [Concomitant]
     Active Substance: SIMVASTATIN
  13. METOPROLOL. [Concomitant]
     Active Substance: METOPROLOL
  14. PANTOPRAZOLE [Suspect]
     Active Substance: PANTOPRAZOLE
     Indication: GASTROOESOPHAGEAL REFLUX DISEASE
     Dosage: 40.0MG UNKNOWN
     Route: 065
     Dates: start: 201509
  15. ATENOLOL. [Concomitant]
     Active Substance: ATENOLOL
     Indication: BLOOD PRESSURE MEASUREMENT
  16. CLONIDINE. [Concomitant]
     Active Substance: CLONIDINE
  17. LEVITRA [Concomitant]
     Active Substance: VARDENAFIL HYDROCHLORIDE
  18. CLOTRIMAZOLE. [Concomitant]
     Active Substance: CLOTRIMAZOLE
  19. HYDROCHLOROTHIAZIDE. [Concomitant]
     Active Substance: HYDROCHLOROTHIAZIDE
  20. PROZAC [Concomitant]
     Active Substance: FLUOXETINE HYDROCHLORIDE
  21. ASPIRIN. [Concomitant]
     Active Substance: ASPIRIN
  22. METOPROLOL TARTRATE. [Concomitant]
     Active Substance: METOPROLOL TARTRATE
  23. DILTIAZEM. [Concomitant]
     Active Substance: DILTIAZEM
  24. NEXIUM [Suspect]
     Active Substance: ESOMEPRAZOLE MAGNESIUM
     Indication: GASTROOESOPHAGEAL REFLUX DISEASE
     Dosage: 40.0MG UNKNOWN
     Route: 048
  25. FENOFIBRATE. [Concomitant]
     Active Substance: FENOFIBRATE
  26. LOSARTAN POTASSIUM. [Concomitant]
     Active Substance: LOSARTAN POTASSIUM
  27. METOPROLOL. [Concomitant]
     Active Substance: METOPROLOL
  28. GABAPENTIN. [Concomitant]
     Active Substance: GABAPENTIN

REACTIONS (3)
  - Nephrogenic anaemia [Unknown]
  - Acute kidney injury [Not Recovered/Not Resolved]
  - Chronic kidney disease [Not Recovered/Not Resolved]

NARRATIVE: CASE EVENT DATE: 20150617
